FAERS Safety Report 5449681-4 (Version None)
Quarter: 2007Q3

REPORT INFORMATION
  Report Type: 
  Country: None (occurrence: None)
  Receive Date: 20070910
  Receipt Date: 20070904
  Transmission Date: 20080115
  Serious: Yes (Death)
  Sender: FDA-Public Use
  Company Number: 2007SP017687

PATIENT
  Age: 59 Year
  Sex: Male
  Weight: 60 kg

DRUGS (17)
  1. TEMODAL [Suspect]
     Indication: ANAPLASTIC ASTROCYTOMA
     Dosage: SEE IMAGE
     Route: 048
     Dates: start: 20061122, end: 20061201
  2. TEMODAL [Suspect]
     Indication: ANAPLASTIC ASTROCYTOMA
     Dosage: SEE IMAGE
     Route: 048
     Dates: start: 20070128, end: 20070201
  3. TEMODAL [Suspect]
     Indication: ANAPLASTIC ASTROCYTOMA
     Dosage: SEE IMAGE
     Route: 048
     Dates: start: 20070225, end: 20070301
  4. TEMODAL [Suspect]
     Indication: ANAPLASTIC ASTROCYTOMA
     Dosage: SEE IMAGE
     Route: 048
     Dates: start: 20070325, end: 20070329
  5. TEMODAL [Suspect]
     Indication: ANAPLASTIC ASTROCYTOMA
     Dosage: SEE IMAGE
     Route: 048
     Dates: start: 20070507, end: 20070511
  6. TEMODAL [Suspect]
     Indication: ANAPLASTIC ASTROCYTOMA
     Dosage: SEE IMAGE
     Route: 048
     Dates: start: 20070604, end: 20070608
  7. BAKTAR [Concomitant]
  8. RINDERON [Concomitant]
  9. LANSOPRAZOLE [Concomitant]
  10. NASEA-OD [Concomitant]
  11. FAMOTIDINE [Concomitant]
  12. GASMOTIN [Concomitant]
  13. MAGNESIUM OXIDE [Concomitant]
  14. PHENOBARBITAL TAB [Concomitant]
  15. OMEPRAZOLE [Concomitant]
  16. PROHEPARUM [Concomitant]
  17. MARZULENE [Concomitant]

REACTIONS (3)
  - HYDROCEPHALUS [None]
  - NEUTROPHIL COUNT DECREASED [None]
  - PNEUMONIA [None]
